FAERS Safety Report 9636738 (Version 6)
Quarter: 2014Q2

REPORT INFORMATION
  Report Type: Report from Study
  Country: GB (occurrence: GB)
  Receive Date: 20131022
  Receipt Date: 20140625
  Transmission Date: 20141212
  Serious: Yes (Death, Life-Threatening, Hospitalization, Other)
  Sender: FDA-Public Use
  Company Number: GB-MPIJNJ-2013JNJ000586

PATIENT
  Sex: 0

DRUGS (11)
  1. VELCADE [Suspect]
     Indication: B-CELL LYMPHOMA
     Dosage: 2.6 MG, UNK
     Route: 065
     Dates: start: 20130904, end: 20130925
  2. RITUXIMAB [Suspect]
     Indication: B-CELL LYMPHOMA
     Dosage: 750 MG, UNK
     Route: 065
     Dates: start: 20130814, end: 20130925
  3. CYCLOPHOSPHAMIDE [Suspect]
     Indication: B-CELL LYMPHOMA
     Dosage: 1500 MG, UNK
     Route: 065
     Dates: start: 20130814, end: 20130925
  4. VINCRISTINE [Suspect]
     Indication: B-CELL LYMPHOMA
     Dosage: 2 MG, UNK
     Route: 065
     Dates: start: 20130814, end: 20130925
  5. DOXORUBICIN [Suspect]
     Indication: B-CELL LYMPHOMA
     Dosage: 100 MG, UNK
     Route: 065
     Dates: start: 20130814, end: 20130925
  6. PREDNISOLONE [Suspect]
     Indication: B-CELL LYMPHOMA
     Dosage: 100 MG, UNK
     Route: 065
     Dates: start: 20130814, end: 20130929
  7. METFORMIN [Concomitant]
     Dosage: 2000 MG, UNK
     Route: 048
  8. GLIMEPIRIDE [Concomitant]
     Dosage: 4 MG, UNK
     Route: 048
  9. AMLODIPINE [Concomitant]
     Dosage: 5 MG, UNK
     Route: 048
  10. SIMVASTATIN [Concomitant]
     Dosage: 40 MG, UNK
     Route: 048
  11. SILDENAFIL [Concomitant]
     Dosage: 100 MG, UNK
     Route: 048

REACTIONS (6)
  - Embolism [Fatal]
  - Tumour lysis syndrome [Fatal]
  - Sepsis [Fatal]
  - Metabolic disorder [Fatal]
  - Hyperglycaemia [Fatal]
  - Renal failure [Fatal]
